FAERS Safety Report 7823424-9 (Version None)
Quarter: 2011Q4

REPORT INFORMATION
  Report Type: 
  Country: None (occurrence: None)
  Receive Date: 20111014
  Receipt Date: 20111005
  Transmission Date: 20120403
  Serious: Yes (Death)
  Sender: FDA-Public Use
  Company Number: AUR-APL-2011-03907

PATIENT
  Age: 50 Year
  Sex: Male

DRUGS (9)
  1. MELOXICAM [Suspect]
     Dosage: ORAL
     Route: 048
     Dates: start: 20070101
  2. ATORVASTATIN [Suspect]
     Dosage: ORAL
     Route: 048
     Dates: start: 20070101
  3. ALLEGRA-D 12 HOUR [Suspect]
     Dosage: ORAL
     Route: 048
     Dates: start: 20070101
  4. CLOPIDOGREL [Suspect]
     Dosage: ORAL
     Route: 048
     Dates: start: 20070101
  5. LISINOPRIL [Suspect]
     Dosage: ORAL
     Route: 048
     Dates: start: 20070101
  6. ALLOPURINOL [Suspect]
     Dosage: ORAL
     Route: 048
     Dates: start: 20070101
  7. IBUPROFEN [Suspect]
     Dosage: ORAL
     Route: 048
     Dates: start: 20070101
  8. METOPROLOL TARTRATE [Suspect]
     Dosage: ORAL
     Route: 048
     Dates: start: 20070101
  9. NAPROXEN [Suspect]
     Dosage: ORAL
     Route: 048
     Dates: start: 20070101

REACTIONS (2)
  - COMPLETED SUICIDE [None]
  - TOXICITY TO VARIOUS AGENTS [None]
